FAERS Safety Report 6253305-6 (Version None)
Quarter: 2009Q3

REPORT INFORMATION
  Report Type: 
  Country: None (occurrence: None)
  Receive Date: 20090701
  Receipt Date: 20080819
  Transmission Date: 20100115
  Serious: Yes (Other)
  Sender: FDA-Public Use
  Company Number: US-BAYER-200825141NA

PATIENT
  Age: 50 Year
  Sex: Male

DRUGS (6)
  1. CAMPATH [Suspect]
     Indication: CHRONIC LYMPHOCYTIC LEUKAEMIA
     Dates: start: 20080523, end: 20080523
  2. CAMPATH [Suspect]
     Dates: start: 20080527, end: 20080527
  3. CAMPATH [Suspect]
     Dates: start: 20080529, end: 20080529
  4. CAMPATH [Suspect]
     Dosage: PREVIOUSLY TREATED WITH CAMPATH, DATES AND DOSE NOT SPECIFIED
  5. CAMPATH [Suspect]
     Dates: start: 20080604, end: 20080604
  6. CAMPATH [Suspect]
     Dates: start: 20080602, end: 20080602

REACTIONS (1)
  - NEUTROPENIA [None]
